FAERS Safety Report 10202521 (Version 1)
Quarter: 2014Q2

REPORT INFORMATION
  Report Type: Spontaneous
  Country: FR (occurrence: FR)
  Receive Date: 20140528
  Receipt Date: 20140528
  Transmission Date: 20141212
  Serious: Yes (Death, Other)
  Sender: FDA-Public Use
  Company Number: FR-ELI_LILLY_AND_COMPANY-FR201405008303

PATIENT
  Age: 68 Year
  Sex: Female

DRUGS (5)
  1. ALIMTA [Suspect]
     Indication: LUNG NEOPLASM MALIGNANT
     Dosage: 500 MG/M2, QD
     Route: 042
     Dates: start: 20140214, end: 20140214
  2. CARBOPLATIN [Suspect]
     Indication: LUNG NEOPLASM MALIGNANT
     Dosage: 328 MG, UNKNOWN
     Dates: start: 20140214, end: 20140214
  3. AVASTIN                            /01555201/ [Suspect]
     Indication: LUNG NEOPLASM MALIGNANT
     Dosage: UNK UNK, UNKNOWN
     Route: 042
     Dates: start: 20140214, end: 20140214
  4. VISIPAQUE [Concomitant]
     Dosage: UNK
     Dates: start: 20140212
  5. HYPNOVEL                           /00634103/ [Concomitant]

REACTIONS (12)
  - Bone marrow failure [Fatal]
  - Pyrexia [Fatal]
  - Haemorrhage [Fatal]
  - Infection [Fatal]
  - Acute respiratory distress syndrome [Recovered/Resolved]
  - Acute pulmonary oedema [Unknown]
  - Renal tubular necrosis [Unknown]
  - Renal failure [Unknown]
  - Hyperkalaemia [Unknown]
  - Vomiting [Unknown]
  - Dehydration [Unknown]
  - Off label use [Unknown]
